FAERS Safety Report 15583120 (Version 3)
Quarter: 2019Q1

REPORT INFORMATION
  Report Type: Spontaneous
  Country: US (occurrence: US)
  Receive Date: 20181103
  Receipt Date: 20190104
  Transmission Date: 20190417
  Serious: No
  Sender: FDA-Public Use
  Company Number: US-UNITED THERAPEUTICS-UNT-2018-018015

PATIENT
  Sex: Female

DRUGS (2)
  1. REMODULIN [Suspect]
     Active Substance: TREPROSTINIL
     Dosage: 0.020 ?G/KG, CONTINUING
     Route: 058
     Dates: start: 20180914
  2. REMODULIN [Suspect]
     Active Substance: TREPROSTINIL
     Indication: PULMONARY ARTERIAL HYPERTENSION
     Dosage: 0.015 ?G/KG, CONTINUING
     Route: 058
     Dates: start: 20180731

REACTIONS (2)
  - Dizziness [Not Recovered/Not Resolved]
  - Oxygen saturation increased [Unknown]

NARRATIVE: CASE EVENT DATE: 2018
